FAERS Safety Report 19926134 (Version 4)
Quarter: 2022Q1

REPORT INFORMATION
  Report Type: Spontaneous
  Country: US (occurrence: US)
  Receive Date: 20211006
  Receipt Date: 20220214
  Transmission Date: 20220424
  Serious: Yes (Other)
  Sender: FDA-Public Use
  Company Number: US-BLUEPRINT MEDICINES CORPORATION-SP-US-2021-001671

PATIENT
  Age: 46 Year
  Sex: Male

DRUGS (5)
  1. AYVAKIT [Suspect]
     Active Substance: AVAPRITINIB
     Indication: Haematopoietic neoplasm
     Route: 048
     Dates: start: 20210724
  2. AYVAKIT [Suspect]
     Active Substance: AVAPRITINIB
     Route: 048
     Dates: start: 20210724
  3. Singulair/Montelukast sodium [Concomitant]
     Indication: Product used for unknown indication
     Route: 065
  4. CROMOLYN SODIUM [Concomitant]
     Active Substance: CROMOLYN SODIUM
     Indication: Product used for unknown indication
     Route: 048
  5. Ketotisen [Concomitant]
     Indication: Product used for unknown indication
     Route: 048

REACTIONS (9)
  - Mental impairment [Recovered/Resolved]
  - Hepatic enzyme decreased [Unknown]
  - Tryptase decreased [Unknown]
  - Eye disorder [Unknown]
  - Eye swelling [Unknown]
  - Swelling face [Unknown]
  - Periorbital swelling [Recovered/Resolved]
  - Blood bilirubin increased [Unknown]
  - Product dose omission issue [Unknown]
